FAERS Safety Report 8932568 (Version 2)
Quarter: 2012Q4

REPORT INFORMATION
  Report Type: Spontaneous
  Country: US (occurrence: None)
  Receive Date: 20121119
  Receipt Date: 20121220
  Transmission Date: 20130627
  Serious: Yes (Death, Hospitalization)
  Sender: FDA-Public Use
  Company Number: ACO_32963_2012

PATIENT
  Age: 48 Year
  Sex: Female

DRUGS (4)
  1. AMPYRA (DALFAMPRIDINE) TABLET, 10MG [Suspect]
     Indication: DRUG USE FOR UNKNOWN INDICATION
     Dates: start: 20100423
  2. GILENYA [Suspect]
     Indication: MULTIPLE SCLEROSIS
     Route: 048
     Dates: start: 20100427
  3. INDOMETHACIN (INDOMETACIN) [Concomitant]
  4. OXYCODONE (OXYCODONE) [Concomitant]

REACTIONS (2)
  - Pulmonary embolism [None]
  - Cervicobrachial syndrome [None]
